FAERS Safety Report 23013770 (Version 1)
Quarter: 2023Q4

REPORT INFORMATION
  Report Type: Spontaneous
  Country: CA (occurrence: CA)
  Receive Date: 20231001
  Receipt Date: 20231001
  Transmission Date: 20240109
  Serious: Yes (Other)
  Sender: FDA-Public Use
  Company Number: CA-SA-2023SA291130

PATIENT
  Age: 77 Year
  Sex: Male
  Weight: 107 kg

DRUGS (2)
  1. INSULIN LISPRO [Suspect]
     Active Substance: INSULIN LISPRO
     Indication: Type 2 diabetes mellitus
     Dosage: DOSE- 20.0 IU (INTERNATIONAL UNIT) FREQUENCY- 3 EVERY 1 DAYS
     Route: 058
  2. TRESIBA [Suspect]
     Active Substance: INSULIN DEGLUDEC
     Indication: Type 2 diabetes mellitus
     Dosage: 42 IU, QD
     Route: 058

REACTIONS (3)
  - Blister [Recovering/Resolving]
  - Oedema peripheral [Recovering/Resolving]
  - Poor peripheral circulation [Recovering/Resolving]
